FAERS Safety Report 8718127 (Version 2)
Quarter: 2012Q4

REPORT INFORMATION
  Report Type: Report from Study
  Country: PL (occurrence: PL)
  Receive Date: 20120810
  Receipt Date: 20120926
  Transmission Date: 20130627
  Serious: Yes (Hospitalization, Other)
  Sender: FDA-Public Use
  Company Number: PL-BRISTOL-MYERS SQUIBB COMPANY-16843732

PATIENT
  Age: 57 Year
  Sex: Female

DRUGS (1)
  1. IPILIMUMAB [Suspect]
     Indication: METASTATIC MALIGNANT MELANOMA
     Dosage: intrp on 06Aug12
     Route: 042
     Dates: start: 20120626, end: 20120717

REACTIONS (2)
  - Intracranial pressure increased [Unknown]
  - Malignant neoplasm progression [Not Recovered/Not Resolved]
